FAERS Safety Report 7000235-8 (Version None)
Quarter: 2010Q3

REPORT INFORMATION
  Report Type: 
  Country: None (occurrence: None)
  Receive Date: 20100920
  Receipt Date: 20070611
  Transmission Date: 20110219
  Serious: Yes (Other)
  Sender: FDA-Public Use
  Company Number: US-ASTRAZENECA-2006UW08152

PATIENT
  Age: 18845 Day
  Sex: Female
  Weight: 81.6 kg

DRUGS (32)
  1. SEROQUEL [Suspect]
     Indication: DEPRESSION
     Dosage: 25MG-50MG
     Route: 048
     Dates: start: 20020807
  2. SEROQUEL [Suspect]
     Route: 048
     Dates: start: 20030401
  3. SEROQUEL [Suspect]
     Dosage: 75MG, AT NIGHT, THREE 25 MG TABLETS
     Route: 048
     Dates: start: 20050101, end: 20060101
  4. RISPERDAL [Concomitant]
     Dates: start: 20020101, end: 20050101
  5. RISPERDAL [Concomitant]
     Dates: start: 20040517
  6. ZYPREXA [Concomitant]
     Dates: start: 20020101, end: 20030101
  7. ZYPREXA [Concomitant]
     Dates: start: 20030515
  8. ZOLOFT [Concomitant]
     Indication: DEPRESSION
     Route: 048
     Dates: start: 20020101
  9. ZOLOFT [Concomitant]
     Dosage: 100MG-200MG
     Dates: start: 20030515
  10. KLONOPIN [Concomitant]
     Dosage: TWO TIMES A DAY
     Route: 048
  11. KLONOPIN [Concomitant]
     Dosage: 1MG-5MG
     Dates: start: 20030515
  12. EPIVIR [Concomitant]
  13. EPIVIR [Concomitant]
     Dates: start: 20061130
  14. NORVIR [Concomitant]
  15. NORVIR [Concomitant]
     Dates: start: 20061010
  16. VIDEX [Concomitant]
     Dates: start: 20061010
  17. REYATAZ [Concomitant]
  18. REYATAZ [Concomitant]
     Dosage: 150MG-200MG
     Dates: start: 20061010
  19. VIOXX [Concomitant]
     Route: 048
  20. VIOXX [Concomitant]
     Dates: start: 20030425
  21. ASPIRIN [Concomitant]
     Route: 048
  22. WELLBUTRIN [Concomitant]
  23. WELLBUTRIN [Concomitant]
     Dates: start: 20050328
  24. DOCUSATE [Concomitant]
     Indication: CONSTIPATION
  25. DOCUSATE [Concomitant]
     Dates: start: 20040517
  26. GABAPENTIN [Concomitant]
  27. GABAPENTIN [Concomitant]
     Dosage: 100MG-300MG
     Dates: start: 20041027
  28. NORTRIPTYLINE HCL [Concomitant]
     Route: 048
  29. NORTRIPTYLINE HCL [Concomitant]
     Dates: start: 20041027
  30. NAPROXEN [Concomitant]
  31. NAPROXEN [Concomitant]
     Dosage: 375MG-500MG
     Dates: start: 20000404
  32. ZOCOR [Concomitant]
     Dosage: 20MG-40MG
     Dates: start: 20051219

REACTIONS (3)
  - CEREBROVASCULAR ACCIDENT [None]
  - DIABETES MELLITUS [None]
  - TYPE 2 DIABETES MELLITUS [None]
